FAERS Safety Report 10266759 (Version 1)
Quarter: 2014Q2

REPORT INFORMATION
  Report Type: Spontaneous
  Country: FR (occurrence: FR)
  Receive Date: 20140630
  Receipt Date: 20140630
  Transmission Date: 20141212
  Serious: Yes (Hospitalization)
  Sender: FDA-Public Use
  Company Number: FR-ROCHE-1423056

PATIENT
  Age: 37 Year
  Sex: Male

DRUGS (2)
  1. CELLCEPT [Suspect]
     Indication: ORGAN TRANSPLANT
     Route: 065
     Dates: start: 2009, end: 20140312
  2. PROGRAF [Suspect]
     Indication: ORGAN TRANSPLANT
     Route: 065
     Dates: start: 2009

REACTIONS (2)
  - Neutropenia [Recovered/Resolved]
  - Behcet^s syndrome [Recovering/Resolving]
